FAERS Safety Report 24307814 (Version 1)
Quarter: 2024Q3

REPORT INFORMATION
  Report Type: Spontaneous
  Country: US (occurrence: None)
  Receive Date: 20240911
  Receipt Date: 20240911
  Transmission Date: 20241017
  Serious: No
  Sender: Public
  Company Number: None

PATIENT
  Sex: Male

DRUGS (7)
  1. ADVATE [Suspect]
     Active Substance: ANTIHEMOPHILIC FACTOR, HUMAN RECOMBINANT
     Indication: Factor VIII deficiency
     Dosage: OTHER QUANTITY : 850 UNITS;?OTHER FREQUENCY : PRN;?
     Route: 042
     Dates: start: 202006
  2. ADVATE INJ [Concomitant]
  3. ALTUVIIO INJ [Concomitant]
  4. BLUNT FILTER NEEDLE 18GX1-1/2 [Concomitant]
  5. NORMAL SALINE FLUSH (5ML) [Concomitant]
  6. AMINOCAPROIX ACID ORAL SOLN [Concomitant]
  7. HEMLIBRA SDV [Concomitant]

REACTIONS (1)
  - Limb injury [None]
